FAERS Safety Report 8555403 (Version 3)
Quarter: 2012Q4

REPORT INFORMATION
  Report Type: 
  Country: US (occurrence: US)
  Receive Date: 20120510
  Receipt Date: 20121029
  Transmission Date: 20130627
  Serious: Yes (Hospitalization, Other)
  Sender: FDA-Public Use
  Company Number: US-BAYER-2012-045463

PATIENT
  Age: 32 Year
  Sex: Female
  Weight: 124.72 kg

DRUGS (6)
  1. YAZ [Suspect]
     Indication: POLYCYSTIC OVARIAN SYNDROME
     Dosage: UNK
     Dates: start: 200904, end: 200907
  2. YASMIN [Suspect]
     Dosage: UNK
     Dates: start: 20090616, end: 20090703
  3. KEFLEX [Concomitant]
     Route: 048
  4. PERCOCET 5/325 [Concomitant]
     Indication: PAIN
     Dosage: prn
  5. MVI [Concomitant]
  6. IBUPROFEN [Concomitant]
     Indication: PAIN

REACTIONS (14)
  - Deep vein thrombosis [None]
  - Injury [None]
  - Pain [None]
  - Emotional distress [None]
  - General physical health deterioration [None]
  - Anxiety [None]
  - Lower extremity mass [None]
  - Thrombophlebitis superficial [None]
  - Gait disturbance [None]
  - Venous injury [None]
  - Activities of daily living impaired [None]
  - Weight increased [None]
  - Varicose vein [None]
  - Pain in extremity [None]
